FAERS Safety Report 14308268 (Version 7)
Quarter: 2019Q1

REPORT INFORMATION
  Report Type: Report from Study
  Country: GB (occurrence: GB)
  Receive Date: 20171220
  Receipt Date: 20190218
  Transmission Date: 20190417
  Serious: Yes (Other)
  Sender: FDA-Public Use
  Company Number: GB-ROCHE-1623341

PATIENT
  Age: 65 Year
  Sex: Female

DRUGS (4)
  1. LANSOPRAZOLE. [Concomitant]
     Active Substance: LANSOPRAZOLE
     Route: 065
  2. NAPROXEN. [Concomitant]
     Active Substance: NAPROXEN
  3. LANSOPRAZOLE. [Concomitant]
     Active Substance: LANSOPRAZOLE
     Route: 065
  4. ESBRIET [Suspect]
     Active Substance: PIRFENIDONE
     Indication: IDIOPATHIC PULMONARY FIBROSIS
     Dosage: 9 CAPSULES A DAY
     Route: 048
     Dates: start: 20141101

REACTIONS (36)
  - Blood cholesterol increased [Unknown]
  - Seasonal allergy [Unknown]
  - Parosmia [Unknown]
  - Musculoskeletal pain [Unknown]
  - Weight decreased [Unknown]
  - Lung infection [Unknown]
  - Productive cough [Unknown]
  - Vitamin D decreased [Unknown]
  - Pulmonary function test decreased [Unknown]
  - Chest pain [Unknown]
  - Muscle strain [Unknown]
  - Gastroenteritis [Unknown]
  - Musculoskeletal stiffness [Unknown]
  - Pain in extremity [Unknown]
  - Mental disorder [Unknown]
  - Poor quality sleep [Unknown]
  - Haemophilus infection [Recovering/Resolving]
  - Cough [Unknown]
  - Fatigue [Unknown]
  - Chest discomfort [Unknown]
  - Nasopharyngitis [Unknown]
  - Lower respiratory tract infection [Not Recovered/Not Resolved]
  - Dry mouth [Unknown]
  - Feeling abnormal [Unknown]
  - Productive cough [Not Recovered/Not Resolved]
  - Malaise [Unknown]
  - Choking [Unknown]
  - Back pain [Unknown]
  - Retching [Unknown]
  - Dyspnoea [Recovered/Resolved]
  - Painful respiration [Unknown]
  - Vomiting [Unknown]
  - Decreased appetite [Recovering/Resolving]
  - Weight increased [Unknown]
  - Burning sensation [Unknown]
  - Gastrooesophageal reflux disease [Unknown]

NARRATIVE: CASE EVENT DATE: 20151125
